FAERS Safety Report 8616724-6 (Version None)
Quarter: 2012Q3

REPORT INFORMATION
  Report Type: 
  Country: None (occurrence: None)
  Receive Date: 20120823
  Receipt Date: 20120809
  Transmission Date: 20120928
  Serious: Yes (Other)
  Sender: FDA-Public Use
  Company Number: CHPA2012US018471

PATIENT

DRUGS (1)
  1. LAMISIL [Suspect]
     Indication: TINEA INFECTION
     Dosage: UNK, UNK
     Route: 061

REACTIONS (17)
  - BODY TINEA [None]
  - APPLICATION SITE DISCOLOURATION [None]
  - MEMORY IMPAIRMENT [None]
  - COGNITIVE DISORDER [None]
  - REBOUND EFFECT [None]
  - DRUG ADMINISTERED AT INAPPROPRIATE SITE [None]
  - SENSATION OF PRESSURE [None]
  - CONTUSION [None]
  - INCORRECT DRUG ADMINISTRATION DURATION [None]
  - BLOOD PRESSURE DECREASED [None]
  - IMPAIRED HEALING [None]
  - DRUG INEFFECTIVE FOR UNAPPROVED INDICATION [None]
  - VISUAL IMPAIRMENT [None]
  - LACERATION [None]
  - RED BLOOD CELL COUNT INCREASED [None]
  - LETHARGY [None]
  - MEAN PLATELET VOLUME DECREASED [None]
